FAERS Safety Report 19036218 (Version 2)
Quarter: 2021Q2

REPORT INFORMATION
  Report Type: Report from Study
  Country: None (occurrence: US)
  Receive Date: 20210321
  Receipt Date: 20210504
  Transmission Date: 20210717
  Serious: Yes (Hospitalization)
  Sender: FDA-Public Use
  Company Number: US-ABBVIE-21K-163-3819295-00

PATIENT
  Sex: Female
  Weight: 68.1 kg

DRUGS (1)
  1. HUMIRA [Suspect]
     Active Substance: ADALIMUMAB
     Indication: UVEITIS
     Dosage: CITRATE FREE
     Route: 058

REACTIONS (7)
  - Intraocular pressure increased [Unknown]
  - Paranasal sinus discomfort [Unknown]
  - Photophobia [Unknown]
  - Headache [Unknown]
  - Vitreous floaters [Unknown]
  - Eye pain [Unknown]
  - Ocular hyperaemia [Unknown]
